FAERS Safety Report 9021442 (Version 2)
Quarter: 2013Q1

REPORT INFORMATION
  Report Type: Spontaneous
  Country: US (occurrence: US)
  Receive Date: 20130119
  Receipt Date: 20130131
  Transmission Date: 20140127
  Serious: No
  Sender: FDA-Public Use
  Company Number: US-009507513-1301USA007040

PATIENT
  Age: 72 None
  Sex: Female

DRUGS (4)
  1. DULERA [Suspect]
     Indication: CHRONIC OBSTRUCTIVE PULMONARY DISEASE
     Dosage: 2 PUFFS EVERY MORNING AND 2 PUFFS EVERY EVENING
     Route: 055
     Dates: start: 201201
  2. DULERA [Suspect]
     Indication: ASTHMA
     Dosage: 2 PUFFS IN THE MORNING AND 1 PUFF IN THE EVENING
     Route: 055
  3. DULERA [Suspect]
     Dosage: 1 PUFF IN THE MORNING AND 1 PUFF IN THE EVENING
     Route: 055
  4. SYNTHROID [Concomitant]

REACTIONS (2)
  - Epistaxis [Not Recovered/Not Resolved]
  - Headache [Not Recovered/Not Resolved]
